FAERS Safety Report 7888895-0 (Version None)
Quarter: 2011Q4

REPORT INFORMATION
  Report Type: 
  Country: None (occurrence: None)
  Receive Date: 20111031
  Receipt Date: 20111017
  Transmission Date: 20120403
  Serious: Yes (Other)
  Sender: FDA-Public Use
  Company Number: B0758449A

PATIENT
  Age: 12 Year
  Sex: Female
  Weight: 36.9228 kg

DRUGS (5)
  1. LOPINAVIR [Concomitant]
  2. FLUTICASONE PROPIONATE [Suspect]
     Indication: ASTHMA
     Dosage: INHALED
     Route: 055
  3. RITONAVIR [Suspect]
     Indication: HIV INFECTION
     Dosage: 50 MG/ FOUR TIMES PER DAY
  4. LAMIVUDINE [Concomitant]
  5. ZIDOVUDINE [Concomitant]

REACTIONS (4)
  - INSULIN RESISTANCE [None]
  - IATROGENIC INJURY [None]
  - ASTHMA [None]
  - CUSHING'S SYNDROME [None]
